FAERS Safety Report 24309729 (Version 2)
Quarter: 2024Q3

REPORT INFORMATION
  Report Type: Spontaneous
  Country: NL (occurrence: NL)
  Receive Date: 20240912
  Receipt Date: 20240919
  Transmission Date: 20241016
  Serious: Yes (Death, Life-Threatening)
  Sender: ACCORD
  Company Number: None

PATIENT
  Age: 60 Year
  Sex: Male
  Weight: 70 kg

DRUGS (3)
  1. CLOZAPINE [Suspect]
     Active Substance: CLOZAPINE
     Indication: Schizophrenia
     Dosage: STRENGTH: 200 MG, 1X TABLET 100MG WITH LUNCH 1X TABLET 300MG AN
     Dates: start: 20120601
  2. TAMSULOSIN [Concomitant]
     Active Substance: TAMSULOSIN
     Dosage: STRENGTH: 0.4MG
  3. PAROXETINE [Concomitant]
     Active Substance: PAROXETINE
     Dosage: STRENGTH: 1 MG

REACTIONS (1)
  - Ileus paralytic [Fatal]
